FAERS Safety Report 5066523-X (Version None)
Quarter: 2006Q3

REPORT INFORMATION
  Report Type: 
  Country: None (occurrence: None)
  Receive Date: 20060731
  Receipt Date: 20060731
  Transmission Date: 20061208
  Serious: Yes (Hospitalization)
  Sender: FDA-Public Use
  Company Number: None

PATIENT
  Age: 74 Year
  Sex: Male
  Weight: 86 kg

DRUGS (7)
  1. VELCADE [Suspect]
     Indication: MULTIPLE MYELOMA
     Dosage: 1.3 MG/M2 DAYS 1, 4, 8, 11 IV
     Route: 042
     Dates: start: 20060630, end: 20060630
  2. DOXORUBICIN HCL [Suspect]
     Indication: MULTIPLE MYELOMA
     Dosage: 15 MG/M2 DAYS 1 AND 4 IV
     Route: 042
     Dates: start: 20060630, end: 20060630
  3. CUMADINE [Concomitant]
  4. MORPHINE [Concomitant]
  5. GABAPENTIN [Concomitant]
  6. TERAZOSIN HCL [Concomitant]
  7. OXICODONE [Concomitant]

REACTIONS (3)
  - CLOSTRIDIAL INFECTION [None]
  - DEHYDRATION [None]
  - DIARRHOEA [None]
